FAERS Safety Report 22620632 (Version 2)
Quarter: 2023Q2

REPORT INFORMATION
  Report Type: Spontaneous
  Country: US (occurrence: US)
  Receive Date: 20230620
  Receipt Date: 20230622
  Transmission Date: 20230721
  Serious: Yes (Other)
  Sender: FDA-Public Use
  Company Number: US-PFIZER INC-PV202300089364

PATIENT
  Age: 65 Year
  Sex: Female
  Weight: 40.82 kg

DRUGS (1)
  1. VYNDAMAX [Suspect]
     Active Substance: TAFAMIDIS
     Dosage: 61 MG

REACTIONS (6)
  - Crohn^s disease [Unknown]
  - Asthenia [Unknown]
  - Dizziness [Unknown]
  - Somnolence [Unknown]
  - Dysphagia [Unknown]
  - Product use complaint [Unknown]
